FAERS Safety Report 23662625 (Version 1)
Quarter: 2024Q1

REPORT INFORMATION
  Report Type: Report from Study
  Country: US (occurrence: US)
  Receive Date: 20240322
  Receipt Date: 20240322
  Transmission Date: 20240409
  Serious: No
  Sender: FDA-Public Use
  Company Number: US-Amphastar Pharmaceuticals, Inc.-2154654

PATIENT
  Age: 77 Year

DRUGS (4)
  1. BAQSIMI [Suspect]
     Active Substance: GLUCAGON
     Route: 045
  2. BASAGLAR KWIKPEN [Suspect]
     Active Substance: INSULIN GLARGINE
     Route: 065
  3. TRULICITY [Suspect]
     Active Substance: DULAGLUTIDE
     Route: 065
  4. HUMALOG KWIKPEN [Suspect]
     Active Substance: INSULIN LISPRO
     Route: 065

REACTIONS (1)
  - Gait disturbance [Unknown]
